FAERS Safety Report 19725538 (Version 2)
Quarter: 2021Q3

REPORT INFORMATION
  Report Type: Report from Study
  Country: BR (occurrence: BR)
  Receive Date: 20210819
  Receipt Date: 20210827
  Transmission Date: 20211014
  Serious: Yes (Hospitalization)
  Sender: FDA-Public Use
  Company Number: BR-ROCHE-2891472

PATIENT
  Age: 44 Year
  Sex: Female
  Weight: 98 kg

DRUGS (8)
  1. ONDANSETRON [Concomitant]
     Active Substance: ONDANSETRON
     Dates: start: 20201126, end: 20210204
  2. CAPTOPRIL. [Concomitant]
     Active Substance: CAPTOPRIL
     Dates: start: 20201126, end: 20201126
  3. DIPIRONE [Concomitant]
     Active Substance: METAMIZOLE SODIUM
     Dates: start: 20201115
  4. OMEPRAZOLE. [Concomitant]
     Active Substance: OMEPRAZOLE
     Dates: start: 20201126, end: 20210204
  5. ATEZOLIZUMAB. [Suspect]
     Active Substance: ATEZOLIZUMAB
     Indication: TRIPLE NEGATIVE BREAST CANCER
     Dosage: DOSE: 1200 MG/20 ML?DATE OF LAST DOSE OF BLINDED ATEZOLIZUMAB: 28/JAN/2021
     Route: 041
     Dates: start: 20201126
  6. LOSARTAN. [Concomitant]
     Active Substance: LOSARTAN
     Dates: start: 20201126
  7. NISTATIN [Concomitant]
     Active Substance: NYSTATIN
     Route: 048
     Dates: start: 20201126, end: 20210204
  8. CAPECITABINE. [Suspect]
     Active Substance: CAPECITABINE
     Indication: TRIPLE NEGATIVE BREAST CANCER
     Dosage: MOST RECENT DOSE ON 01/FEB/2021 WAS 2000 MG
     Route: 048
     Dates: start: 20201126

REACTIONS (1)
  - COVID-19 [Recovered/Resolved]

NARRATIVE: CASE EVENT DATE: 20210209
